FAERS Safety Report 6787578-8 (Version None)
Quarter: 2010Q2

REPORT INFORMATION
  Report Type: 
  Country: None (occurrence: None)
  Receive Date: 20100623
  Receipt Date: 20050809
  Transmission Date: 20101027
  Serious: No
  Sender: FDA-Public Use
  Company Number: US-PFIZER INC-2007056816

PATIENT
  Age: 7 Year
  Sex: Female
  Weight: 30.39 kg

DRUGS (1)
  1. ZIPRASIDONE (CAPS) [Suspect]

REACTIONS (2)
  - CRYING [None]
  - SOMNOLENCE [None]
